FAERS Safety Report 5149506-0 (Version None)
Quarter: 2006Q4

REPORT INFORMATION
  Report Type: 
  Country: None (occurrence: None)
  Receive Date: 20061113
  Receipt Date: 20060222
  Transmission Date: 20070319
  Serious: No
  Sender: FDA-Public Use
  Company Number: US-GLAXOSMITHKLINE-A0594812A

PATIENT
  Sex: Female

DRUGS (13)
  1. COREG [Suspect]
     Dosage: 56.25MG PER DAY
     Route: 048
     Dates: start: 19990101
  2. ENALAPRIL MALEATE [Concomitant]
  3. LEVOTHYROXINE SODIUM [Concomitant]
  4. PREMARIN [Concomitant]
  5. PREVACID [Concomitant]
  6. HYDROCHLOROTHIAZIDE [Concomitant]
  7. GLUCOPHAGE XR [Concomitant]
  8. LASIX [Concomitant]
  9. CATAPRES-TTS-1 [Concomitant]
  10. ASPARIN [Concomitant]
  11. NORVASC [Concomitant]
  12. CALCIUM [Concomitant]
  13. ZOCOR [Concomitant]

REACTIONS (3)
  - ARTHRALGIA [None]
  - ARTHRITIS [None]
  - BACK PAIN [None]
